FAERS Safety Report 11178727 (Version 1)
Quarter: 2015Q2

REPORT INFORMATION
  Report Type: Spontaneous
  Country: GR (occurrence: GR)
  Receive Date: 20150610
  Receipt Date: 20150610
  Transmission Date: 20150821
  Serious: Yes (Other)
  Sender: FDA-Public Use
  Company Number: GR-009507513-1506GRC003330

PATIENT
  Sex: Female

DRUGS (4)
  1. TRIPTORELIN [Suspect]
     Active Substance: TRIPTORELIN
     Indication: OVULATION INDUCTION
     Dosage: UNK
  2. MENOPUR [Suspect]
     Active Substance: FOLLICLE STIMULATING HORMONE BETA POLYPEPTIDE\LUTROPIN ALFA
     Indication: OVULATION INDUCTION
     Dosage: UNK
  3. FOLLITROPIN BETA [Suspect]
     Active Substance: FOLLITROPIN
     Indication: OVULATION INDUCTION
     Dosage: STRENGTH: 600IU/0.72 ML
     Dates: start: 201501, end: 2015
  4. PREGNYL [Suspect]
     Active Substance: CHORIOGONADOTROPIN ALFA
     Indication: OVULATION INDUCTION
     Dosage: UNK

REACTIONS (4)
  - Haemorrhagic ovarian cyst [Unknown]
  - Ovarian cyst ruptured [Unknown]
  - Ovarian cyst [Unknown]
  - Surgery [Unknown]

NARRATIVE: CASE EVENT DATE: 2015
